FAERS Safety Report 23277058 (Version 1)
Quarter: 2023Q4

REPORT INFORMATION
  Report Type: Spontaneous
  Country: CA (occurrence: CA)
  Receive Date: 20231208
  Receipt Date: 20231208
  Transmission Date: 20240109
  Serious: Yes (Hospitalization)
  Sender: FDA-Public Use
  Company Number: CA-FreseniusKabi-FK202319737

PATIENT
  Age: 7 Year
  Sex: Male
  Weight: 23 kg

DRUGS (12)
  1. MESNA [Suspect]
     Active Substance: MESNA
     Indication: Medulloblastoma
     Dosage: DOSAGE FORM: NOT SPECIFIED
  2. CYCLOPHOSPHAMIDE [Suspect]
     Active Substance: CYCLOPHOSPHAMIDE
     Indication: Medulloblastoma
     Dosage: 1000.0 MG/M2?TABLETS
  3. VINCRISTINE SULFATE [Suspect]
     Active Substance: VINCRISTINE SULFATE
     Indication: Medulloblastoma
     Dosage: 1.0 MG/M2?NOT SPECIFIED
  4. ACETAMINOPHEN [Concomitant]
     Active Substance: ACETAMINOPHEN
     Dosage: NOT SPECIFIED
  5. DIMENHYDRINATE [Concomitant]
     Active Substance: DIMENHYDRINATE
     Dosage: NOT SPECIFIED
  6. DOMPERIDONE [Concomitant]
     Active Substance: DOMPERIDONE
     Dosage: TABLETS
  7. FILGRASTIM [Concomitant]
     Active Substance: FILGRASTIM
  8. LORAZEPAM [Concomitant]
     Active Substance: LORAZEPAM
     Dosage: NOT SPECIFIED
  9. OLANZAPINE [Concomitant]
     Active Substance: OLANZAPINE
     Dosage: NOT SPECIFIED
  10. ONDANSETRON [Concomitant]
     Active Substance: ONDANSETRON
     Dosage: NOT SPECIFIED
  11. POLYETHYLENE GLYCOL [Concomitant]
     Active Substance: POLYETHYLENE GLYCOL
     Dosage: NOT SPECIFIED
  12. SULFAMETHOXAZOLE AND TRIMETHOPRIM [Concomitant]
     Active Substance: SULFAMETHOXAZOLE\TRIMETHOPRIM
     Dosage: NOT SPECIFIED

REACTIONS (1)
  - Febrile neutropenia [Recovered/Resolved]
